FAERS Safety Report 5164716-4 (Version None)
Quarter: 2006Q4

REPORT INFORMATION
  Report Type: 
  Country: None (occurrence: None)
  Receive Date: 20061124
  Receipt Date: 20061114
  Transmission Date: 20070319
  Serious: Yes (Congenital Anomaly)
  Sender: FDA-Public Use
  Company Number: 8020231

PATIENT

DRUGS (4)
  1. KEPPRA [Suspect]
     Indication: EPILEPSY
     Dosage: 4000 MG /D TRP
     Route: 064
     Dates: start: 20060501
  2. LAMICTAL [Concomitant]
  3. FOLIC ACID [Concomitant]
  4. VITAMIN CAP [Concomitant]

REACTIONS (2)
  - CONGENITAL CHOROID PLEXUS CYST [None]
  - DRUG EXPOSURE DURING PREGNANCY [None]
